FAERS Safety Report 26010007 (Version 1)
Quarter: 2025Q4

REPORT INFORMATION
  Report Type: Spontaneous
  Country: US (occurrence: US)
  Receive Date: 20251107
  Receipt Date: 20251107
  Transmission Date: 20260117
  Serious: Yes (Hospitalization)
  Sender: Steriscience PTE
  Company Number: US-STERISCIENCE B.V.-2025-ST-001608

PATIENT
  Age: 38 Year
  Sex: Male

DRUGS (3)
  1. SUCCINYLCHOLINE CHLORIDE [Suspect]
     Active Substance: SUCCINYLCHOLINE CHLORIDE
     Indication: Sedative therapy
     Dosage: 80 MILLIGRAM, INJECTION
  2. METHOHEXITAL [Suspect]
     Active Substance: METHOHEXITAL
     Indication: Sedative therapy
     Dosage: 100 MILLIGRAM, INJECTION
  3. DEXMEDETOMIDINE [Suspect]
     Active Substance: DEXMEDETOMIDINE
     Indication: Sedative therapy
     Dosage: 20 MILLIGRAM, INJECTION

REACTIONS (3)
  - Injection site pain [Unknown]
  - Medication error [Unknown]
  - Off label use [Unknown]
